FAERS Safety Report 9528564 (Version 1)
Quarter: 2013Q2

REPORT INFORMATION
  Report Type: Spontaneous
  Country: US (occurrence: None)
  Receive Date: 20130520
  Receipt Date: 20130520
  Transmission Date: 20140414
  Serious: Yes (Death, Hospitalization, Other)
  Sender: FDA-Public Use
  Company Number: 075217

PATIENT
  Age: 55 Year
  Sex: Female

DRUGS (5)
  1. ALPRAZOLAM [Suspect]
     Route: 048
  2. DILTIAZEM [Suspect]
     Dosage: EXTENDED RELEASE ORAL
     Route: 048
  3. CARISOPRODOL [Suspect]
     Route: 048
  4. TRIAZOLAM [Suspect]
     Route: 048
  5. LISINOPRIL [Suspect]
     Route: 048

REACTIONS (1)
  - Completed suicide [None]
